FAERS Safety Report 22185186 (Version 3)
Quarter: 2024Q3

REPORT INFORMATION
  Report Type: Report from Study
  Country: US (occurrence: US)
  Receive Date: 20230407
  Receipt Date: 20240813
  Transmission Date: 20241017
  Serious: Yes (Other)
  Sender: NOVARTIS
  Company Number: US-002147023-NVSC2023US081046

PATIENT
  Sex: Female
  Weight: 58.97 kg

DRUGS (1)
  1. ENTRESTO [Suspect]
     Active Substance: SACUBITRIL\VALSARTAN
     Indication: Cardiac failure congestive
     Dosage: 1 DOSAGE FORM, QD
     Route: 065

REACTIONS (12)
  - Myocardial infarction [Unknown]
  - Chest pain [Unknown]
  - Feeding disorder [Unknown]
  - Weight decreased [Unknown]
  - Cough [Unknown]
  - Dyspnoea [Unknown]
  - Inappropriate schedule of product administration [Unknown]
  - Product use issue [Unknown]
  - Toothache [Unknown]
  - Procedural pain [Unknown]
  - Gait disturbance [Unknown]
  - Fatigue [Unknown]
